FAERS Safety Report 25751485 (Version 2)
Quarter: 2025Q3

REPORT INFORMATION
  Report Type: Spontaneous
  Country: CL (occurrence: CL)
  Receive Date: 20250902
  Receipt Date: 20250916
  Transmission Date: 20251021
  Serious: Yes (Hospitalization, Other)
  Sender: NOVO NORDISK
  Company Number: CL-NOVOPROD-1506924

PATIENT
  Age: 59 Year
  Sex: Male
  Weight: 99 kg

DRUGS (4)
  1. SAXENDA [Suspect]
     Active Substance: LIRAGLUTIDE
     Indication: Weight control
     Route: 058
     Dates: start: 202502
  2. SAXENDA [Suspect]
     Active Substance: LIRAGLUTIDE
     Route: 058
     Dates: start: 20250818
  3. SAXENDA [Suspect]
     Active Substance: LIRAGLUTIDE
     Indication: Type 2 diabetes mellitus
     Route: 058
     Dates: start: 202504
  4. ACETAZOLAMIDE [Concomitant]
     Active Substance: ACETAZOLAMIDE
     Indication: Type 2 diabetes mellitus
     Dosage: 1000 MG, QD
     Route: 048
     Dates: start: 2023

REACTIONS (4)
  - Non-Hodgkin^s lymphoma [Recovered/Resolved]
  - Gastric cancer [Recovered/Resolved]
  - Helicobacter infection [Unknown]
  - Injection site hypersensitivity [Recovered/Resolved]

NARRATIVE: CASE EVENT DATE: 20250201
